FAERS Safety Report 10018865 (Version 1)
Quarter: 2014Q1

REPORT INFORMATION
  Report Type: Spontaneous
  Country: US (occurrence: US)
  Receive Date: 20140318
  Receipt Date: 20140318
  Transmission Date: 20141002
  Serious: No
  Sender: FDA-Public Use
  Company Number: US-009507513-1403USA008256

PATIENT
  Age: 24 Year
  Sex: Female

DRUGS (2)
  1. NEXPLANON [Suspect]
     Dosage: UNK
     Route: 059
     Dates: start: 201403, end: 20140317
  2. IMPLANON [Concomitant]
     Dosage: UNK
     Route: 059
     Dates: end: 201403

REACTIONS (2)
  - Implant site infection [Not Recovered/Not Resolved]
  - Device expulsion [Not Recovered/Not Resolved]
